FAERS Safety Report 5049209-7 (Version None)
Quarter: 2006Q3

REPORT INFORMATION
  Report Type: 
  Country: None (occurrence: None)
  Receive Date: 20060706
  Receipt Date: 20041116
  Transmission Date: 20061208
  Serious: Yes (Hospitalization)
  Sender: FDA-Public Use
  Company Number: FRWYE288809SEP03

PATIENT
  Age: 47 Year
  Sex: Male

DRUGS (9)
  1. PROGRAF [Suspect]
     Indication: PROPHYLAXIS AGAINST TRANSPLANT REJECTION
     Dosage: 4 MG 1X PER 1 DAY
     Route: 048
     Dates: start: 20021229, end: 20030903
  2. CELLCEPT [Concomitant]
  3. PREDNISONE TAB [Concomitant]
  4. ASPEGIC 1000 [Concomitant]
  5. OMEPRAZOLE [Concomitant]
  6. PROPRANOLOL [Concomitant]
  7. EUCALCIC          (CALCIUM CARBONATE) [Concomitant]
  8. PRAVASTATIN [Concomitant]
  9. VALACYCLOVIR [Concomitant]

REACTIONS (7)
  - BLOOD LACTATE DEHYDROGENASE INCREASED [None]
  - DRUG TOXICITY [None]
  - HAEMOGLOBIN DECREASED [None]
  - HAPTOGLOBIN DECREASED [None]
  - PLATELET COUNT DECREASED [None]
  - RENAL FAILURE ACUTE [None]
  - THROMBOTIC MICROANGIOPATHY [None]
